FAERS Safety Report 4396135-2 (Version None)
Quarter: 2004Q3

REPORT INFORMATION
  Report Type: 
  Country: None (occurrence: None)
  Receive Date: 20040706
  Receipt Date: 20040621
  Transmission Date: 20050211
  Serious: Yes (Death, Life-Threatening, Hospitalization)
  Sender: FDA-Public Use
  Company Number: B0261681A

PATIENT
  Age: 23 Day
  Sex: Male
  Weight: 1.6783 kg

DRUGS (6)
  1. TICARCILLIN SODIUM+POTASSIUM CLAVULANATE INFUSION (TICARCILLIN NA+K CL [Suspect]
     Indication: NECROTISING ENTEROCOLITIS NEONATAL
     Dosage: INTRAVENOUS
     Route: 042
     Dates: start: 20020219, end: 20020224
  2. CEFTAZIDIME SODIUM [Concomitant]
  3. VANCOMYCIN HYDROCHLORIDE [Concomitant]
  4. TIENAM [Concomitant]
  5. NETILMICIN SULFATE [Concomitant]
  6. METRONIDAZOLE [Concomitant]

REACTIONS (10)
  - ACCIDENTAL OVERDOSE [None]
  - CONDITION AGGRAVATED [None]
  - DISEASE RECURRENCE [None]
  - METABOLIC ACIDOSIS [None]
  - NECROTISING ENTEROCOLITIS NEONATAL [None]
  - NEONATAL DISORDER [None]
  - NEPHRITIS INTERSTITIAL [None]
  - RENAL FAILURE [None]
  - SEPTIC SHOCK [None]
  - THROMBOCYTOPENIA NEONATAL [None]
